FAERS Safety Report 16301594 (Version 1)
Quarter: 2019Q2

REPORT INFORMATION
  Report Type: Report from Study
  Country: CA (occurrence: CA)
  Receive Date: 20190511
  Receipt Date: 20190511
  Transmission Date: 20190711
  Serious: Yes (Disabling)
  Sender: FDA-Public Use
  Company Number: CA-AMGEN-CANCT2019034980

PATIENT
  Age: 62 Year
  Sex: Female

DRUGS (2)
  1. AIMOVIG [Suspect]
     Active Substance: ERENUMAB-AOOE
     Indication: MIGRAINE
     Dosage: 70 MG/ML, UNK
     Route: 065
     Dates: start: 20190202, end: 20190204
  2. AIMOVIG [Suspect]
     Active Substance: ERENUMAB-AOOE
     Dosage: UNK
     Route: 065
     Dates: start: 20190311

REACTIONS (16)
  - Influenza [Recovering/Resolving]
  - Malaise [Recovering/Resolving]
  - Migraine [Not Recovered/Not Resolved]
  - Constipation [Recovered/Resolved]
  - Decreased immune responsiveness [Unknown]
  - Nausea [Recovered/Resolved]
  - Blood pressure decreased [Recovered/Resolved]
  - Vomiting [Unknown]
  - Muscle spasms [Not Recovered/Not Resolved]
  - Pyrexia [Recovered/Resolved]
  - Headache [Unknown]
  - Taste disorder [Unknown]
  - Sinusitis [Recovered/Resolved]
  - Migraine [Recovered/Resolved]
  - Vision blurred [Recovering/Resolving]
  - Diarrhoea [Unknown]

NARRATIVE: CASE EVENT DATE: 20190204
